FAERS Safety Report 8083819-8 (Version None)
Quarter: 2012Q1

REPORT INFORMATION
  Report Type: 
  Country: None (occurrence: None)
  Receive Date: 20120128
  Receipt Date: 20110202
  Transmission Date: 20120608
  Serious: No
  Sender: FDA-Public Use
  Company Number: US-ABBOTT-11P-163-0702909-00

PATIENT
  Sex: Male

DRUGS (1)
  1. HUMIRA [Suspect]
     Indication: PSORIATIC ARTHROPATHY
     Dosage: PATIENT WAS PRESCRIBED HUMIRA ON JUN 2010, BUT DID NOT START MEDICATION UNTIL JUL 2010.
     Dates: start: 20100701

REACTIONS (2)
  - RASH [None]
  - ARTHRALGIA [None]
